FAERS Safety Report 20205777 (Version 1)
Quarter: 2021Q4

REPORT INFORMATION
  Report Type: Spontaneous
  Country: DE (occurrence: DE)
  Receive Date: 20211220
  Receipt Date: 20211220
  Transmission Date: 20220303
  Serious: Yes (Hospitalization)
  Sender: FDA-Public Use
  Company Number: DE-NOVARTISPH-NVSC2021DE286404

PATIENT
  Age: 66 Year
  Sex: Female
  Weight: 73.1 kg

DRUGS (6)
  1. TORSEMIDE [Suspect]
     Active Substance: TORSEMIDE
     Indication: Product used for unknown indication
     Dosage: 10 MG, BID (1-1-0-0, TABLETTEN)
     Route: 048
  2. PACLITAXEL [Suspect]
     Active Substance: PACLITAXEL
     Indication: Product used for unknown indication
     Dosage: 80 MG, QW (80 MG / WOCHE, NACH SCHEMA)
     Route: 065
  3. ENALAPRIL [Suspect]
     Active Substance: ENALAPRIL
     Indication: Product used for unknown indication
     Dosage: 10 MG, QD (1-0-0-0, TABLETTEN)
     Route: 048
  4. METAMIZOL [Concomitant]
     Active Substance: METAMIZOLE SODIUM
     Indication: Product used for unknown indication
     Dosage: 500 MG (BEDARF, TABLETTEN)
     Route: 048
  5. METOPROLOL [Concomitant]
     Active Substance: METOPROLOL
     Indication: Product used for unknown indication
     Dosage: 95 MG, QD (1-0-0-0, RETARD-TABLETTEN)
     Route: 048
  6. LEVOTHYROXINE SODIUM [Concomitant]
     Active Substance: LEVOTHYROXINE SODIUM
     Indication: Product used for unknown indication
     Dosage: 50 UG, QD (50 ?G, 1-0-0-0, TABLETTEN)
     Route: 048

REACTIONS (5)
  - Dyspnoea [Unknown]
  - Oedema peripheral [Unknown]
  - Pain [Unknown]
  - General physical health deterioration [Unknown]
  - Fatigue [Unknown]
